FAERS Safety Report 7811908-9 (Version None)
Quarter: 2011Q4

REPORT INFORMATION
  Report Type: 
  Country: None (occurrence: None)
  Receive Date: 20111013
  Receipt Date: 20110930
  Transmission Date: 20120403
  Serious: Yes (Other)
  Sender: FDA-Public Use
  Company Number: PHHY2011DE87630

PATIENT
  Age: 51 Year
  Sex: Female

DRUGS (2)
  1. CITALOPRAM-RATIOPHARM [Suspect]
     Indication: DEPRESSION
     Dosage: 40 MG, PER DAY
     Dates: end: 20110401
  2. CLOZAPINE [Suspect]
     Indication: SCHIZOAFFECTIVE DISORDER
     Dosage: 200 MG PER DAY
     Route: 048
     Dates: end: 20110401

REACTIONS (1)
  - LONG QT SYNDROME [None]
